FAERS Safety Report 8403655-X (Version None)
Quarter: 2012Q2

REPORT INFORMATION
  Report Type: 
  Country: None (occurrence: None)
  Receive Date: 20120601
  Receipt Date: 20120528
  Transmission Date: 20120825
  Serious: Yes (Other)
  Sender: FDA-Public Use
  Company Number: CZ-ACTELION-A-CH2012-60469

PATIENT
  Sex: Female
  Weight: 51 kg

DRUGS (7)
  1. MILGAMMA [Concomitant]
     Indication: VITAMIN SUPPLEMENTATION
     Dosage: UNK
     Dates: start: 20070901
  2. ZAVESCA [Suspect]
     Indication: NIEMANN-PICK DISEASE
     Dosage: 100 MG, TID
     Route: 048
     Dates: start: 20110915, end: 20120130
  3. ZAVESCA [Suspect]
     Dosage: 100 MG, TID
     Route: 048
     Dates: start: 20120131, end: 20120222
  4. ASENTRA [Concomitant]
     Indication: DEPRESSION
     Dosage: UNK
     Dates: start: 20070901
  5. CYANOCOBALAMIN [Concomitant]
  6. THIAMINE HCL [Concomitant]
  7. ZAVESCA [Suspect]
     Dosage: 100 MG, TID
     Route: 048
     Dates: start: 20120410, end: 20120501

REACTIONS (7)
  - CONDITION AGGRAVATED [None]
  - MEMORY IMPAIRMENT [None]
  - CONFUSIONAL STATE [None]
  - DISORIENTATION [None]
  - MENTAL STATUS CHANGES [None]
  - APATHY [None]
  - DISTURBANCE IN ATTENTION [None]
